FAERS Safety Report 4368421-3 (Version None)
Quarter: 2004Q2

REPORT INFORMATION
  Report Type: 
  Country: None (occurrence: None)
  Receive Date: 20040602
  Receipt Date: 20031030
  Transmission Date: 20050107
  Serious: No
  Sender: FDA-Public Use
  Company Number: US-GLAXOSMITHKLINE-A0432289A

PATIENT
  Sex: Male

DRUGS (2)
  1. AUGMENTIN [Suspect]
     Indication: INFECTION PROPHYLAXIS
     Dosage: 875MG TWICE PER DAY
     Route: 048
  2. GAVISCON [Concomitant]

REACTIONS (1)
  - DYSPEPSIA [None]
